FAERS Safety Report 6379941-4 (Version None)
Quarter: 2009Q3

REPORT INFORMATION
  Report Type: 
  Country: None (occurrence: None)
  Receive Date: 20090821
  Receipt Date: 20090716
  Transmission Date: 20100115
  Serious: Yes (Hospitalization)
  Sender: FDA-Public Use
  Company Number: 1000007131

PATIENT
  Age: 27 Year
  Sex: Male
  Weight: 83.9154 kg

DRUGS (5)
  1. CELEXA [Suspect]
     Indication: BIPOLAR I DISORDER
     Dosage: (1 IN 1 D), ORAL
     Route: 048
     Dates: start: 20080501, end: 20080601
  2. VYVANSE [Suspect]
     Indication: ATTENTION DEFICIT/HYPERACTIVITY DISORDER
     Dosage: 50 MG (50 MG, 1 IN 1 D), ORAL
     Route: 048
     Dates: end: 20080501
  3. VYVANSE [Suspect]
     Indication: ATTENTION DEFICIT/HYPERACTIVITY DISORDER
     Dosage: 50 MG (50 MG, 1 IN 1 D), ORAL
     Route: 048
     Dates: start: 20090501
  4. LITHIUM [Concomitant]
  5. AMBIEN [Concomitant]

REACTIONS (1)
  - HYPERSENSITIVITY [None]
